FAERS Safety Report 10433066 (Version 1)
Quarter: 2014Q3

REPORT INFORMATION
  Report Type: Spontaneous
  Country: US (occurrence: None)
  Receive Date: 20140815
  Receipt Date: 20140815
  Transmission Date: 20150326
  Serious: No
  Sender: FDA-Public Use
  Company Number: A-US2014-102134

PATIENT
  Age: 69 Year
  Sex: Female

DRUGS (14)
  1. OPSUMIT [Suspect]
     Active Substance: MACITENTAN
     Indication: PULMONARY HYPERTENSION
     Route: 048
     Dates: start: 20140513
  2. POTASSIUM CHLORIDE (POTASSIUM CHLORIDE) [Concomitant]
     Active Substance: POTASSIUM CHLORIDE
  3. BIOTIN (BIOTIN) [Concomitant]
  4. HYDROXYCHLOROQUINE (HYDROXYCHLOROQUINE) [Concomitant]
  5. ALDACTONE [Concomitant]
     Active Substance: SPIRONOLACTONE
  6. HYDROXYCHLOROQUINE (HYDROXYCHLOROQUINE) [Concomitant]
  7. VITAMIN E [Concomitant]
     Active Substance: .ALPHA.-TOCOPHEROL
  8. LASIX [Concomitant]
     Active Substance: FUROSEMIDE
  9. HYDROXYCHLOROQUINE (HYDROXYCHLOROQUINE) [Concomitant]
  10. ADCIRCA [Concomitant]
     Active Substance: TADALAFIL
  11. LOSARTAN (LOSARTAN) [Concomitant]
     Active Substance: LOSARTAN
  12. COLACE [Concomitant]
     Active Substance: DOCUSATE SODIUM
  13. PREDNISONE (PREDNISONE) [Concomitant]
     Active Substance: PREDNISONE
  14. BABY ASPIRIN (ACETYLSALICYLIC ACID) [Concomitant]
     Active Substance: ASPIRIN

REACTIONS (1)
  - Nasal congestion [None]

NARRATIVE: CASE EVENT DATE: 20140615
